FAERS Safety Report 9358371 (Version 2)
Quarter: 2013Q3

REPORT INFORMATION
  Report Type: Report from Study
  Country: AR (occurrence: AR)
  Receive Date: 20130620
  Receipt Date: 20130705
  Transmission Date: 20140515
  Serious: Yes (Other)
  Sender: FDA-Public Use
  Company Number: PHHY2013AR058857

PATIENT
  Sex: Female

DRUGS (2)
  1. ONBREZ [Suspect]
     Indication: EMPHYSEMA
     Dosage: 300 UG, QD
     Dates: start: 201305, end: 201305
  2. ONBREZ [Suspect]
     Indication: OFF LABEL USE
     Dosage: 150 UG, QD
     Dates: start: 201305

REACTIONS (2)
  - Dyspnoea [Recovered/Resolved]
  - Feeling abnormal [Recovered/Resolved]
